FAERS Safety Report 8536361-1 (Version None)
Quarter: 2012Q3

REPORT INFORMATION
  Report Type: 
  Country: None (occurrence: None)
  Receive Date: 20120725
  Receipt Date: 20120720
  Transmission Date: 20120928
  Serious: Yes (Hospitalization)
  Sender: FDA-Public Use
  Company Number: JP-PFIZER INC-2012147964

PATIENT
  Age: 63 Year
  Sex: Female
  Weight: 37.8 kg

DRUGS (3)
  1. VARENICLINE TARTRATE [Suspect]
     Indication: SMOKING CESSATION THERAPY
     Dosage: 0.5 MG, 1X/DAY
     Route: 048
     Dates: start: 20120406, end: 20120408
  2. VARENICLINE TARTRATE [Suspect]
     Dosage: 1 MG, 2X/DAY
     Route: 048
     Dates: start: 20120413, end: 20120614
  3. VARENICLINE TARTRATE [Suspect]
     Dosage: 0.5 MG, 2X/DAY
     Route: 048
     Dates: start: 20120409, end: 20120412

REACTIONS (3)
  - VOGT-KOYANAGI-HARADA SYNDROME [None]
  - RADICULAR PAIN [None]
  - CONSTIPATION [None]
